FAERS Safety Report 4445274-6 (Version None)
Quarter: 2004Q3

REPORT INFORMATION
  Report Type: 
  Country: None (occurrence: None)
  Receive Date: 20040907
  Receipt Date: 20040823
  Transmission Date: 20050211
  Serious: No
  Sender: FDA-Public Use
  Company Number: 04P-167-0271527-00

PATIENT
  Age: 60 Year
  Sex: Female
  Weight: 90.5 kg

DRUGS (8)
  1. MERIDIA [Suspect]
     Indication: OBESITY
     Dosage: 1 DOSAGE FORMS, 1 IN 1 D, PER ORAL
     Route: 048
     Dates: start: 20040211, end: 20040630
  2. GAVISCON [Concomitant]
  3. ESOMEPRAZOLE [Concomitant]
  4. BENDROFLUMETHIAZIDE [Concomitant]
  5. LEVOTHYROXINE SODIUM [Concomitant]
  6. MESALAMINE [Concomitant]
  7. ROFECOXIB [Concomitant]
  8. ACETAMINOPHEN W/ CODEINE [Concomitant]

REACTIONS (1)
  - COLITIS [None]
